FAERS Safety Report 10203301 (Version 1)
Quarter: 2014Q2

REPORT INFORMATION
  Report Type: Spontaneous
  Country: US (occurrence: US)
  Receive Date: 20140529
  Receipt Date: 20140529
  Transmission Date: 20141212
  Serious: Yes (Hospitalization)
  Sender: FDA-Public Use
  Company Number: US-ALVOGEN-2014AL000685

PATIENT
  Age: 23 Year
  Sex: Female

DRUGS (3)
  1. NAPROXEN [Suspect]
     Indication: BACK PAIN
  2. TRAMADOL [Suspect]
     Indication: BACK PAIN
  3. METAXALONE [Suspect]
     Indication: BACK PAIN

REACTIONS (3)
  - Serotonin syndrome [Recovered/Resolved]
  - Suicide attempt [Recovered/Resolved]
  - Intentional overdose [Recovered/Resolved]
